FAERS Safety Report 5530346-5 (Version None)
Quarter: 2007Q4

REPORT INFORMATION
  Report Type: 
  Country: None (occurrence: None)
  Receive Date: 20071127
  Receipt Date: 20071127
  Transmission Date: 20080405
  Serious: Yes (Death)
  Sender: FDA-Public Use
  Company Number: None

PATIENT
  Age: 55 Year
  Sex: Male
  Weight: 84 kg

DRUGS (12)
  1. TEMOZOLOMIDE [Suspect]
     Indication: GLIOBLASTOMA MULTIFORME
     Dosage: 50MG/M2 PO DAILY
     Route: 048
     Dates: start: 20070829, end: 20070925
  2. BEVACIZUMAB (GENENTECH) [Suspect]
     Indication: GLIOBLASTOMA MULTIFORME
     Dosage: 10MG/KG IV EVERY 2 WEEKS
     Route: 042
     Dates: start: 20070829
  3. BEVACIZUMAB (GENENTECH) [Suspect]
     Indication: GLIOBLASTOMA MULTIFORME
     Dosage: 10MG/KG IV EVERY 2 WEEKS
     Route: 042
     Dates: start: 20070912
  4. KEPPRA [Concomitant]
  5. DILANTIN [Concomitant]
  6. DECADRON [Concomitant]
  7. HYDROCHLOROTHIAZIDE [Concomitant]
  8. ZANTAC [Concomitant]
  9. METFORMIN HCL [Concomitant]
  10. MOM [Concomitant]
  11. NEURONTIN [Concomitant]
  12. DECADRON [Concomitant]

REACTIONS (4)
  - AMNESIA [None]
  - GLIOBLASTOMA MULTIFORME [None]
  - HEMIPARESIS [None]
  - MALIGNANT NEOPLASM PROGRESSION [None]
